FAERS Safety Report 4501168-9 (Version None)
Quarter: 2004Q4

REPORT INFORMATION
  Report Type: 
  Country: None (occurrence: None)
  Receive Date: 20041109
  Receipt Date: 20041021
  Transmission Date: 20050328
  Serious: Yes (Death, Hospitalization)
  Sender: FDA-Public Use
  Company Number: GBS041015690

PATIENT
  Age: 55 Year
  Sex: Female

DRUGS (7)
  1. ZYPREXA [Suspect]
     Indication: SCHIZOPHRENIA
     Dosage: 5 MG DAY
     Dates: start: 20021029, end: 20040101
  2. MIRTAZAPINE [Concomitant]
  3. CARBAMAZEPINE [Concomitant]
  4. TOLTERODINE [Concomitant]
  5. THYROXINE (LEVOTHYROXINE SODIUM) [Concomitant]
  6. NAPROXEN SODIUM [Concomitant]
  7. CALCIUM [Concomitant]

REACTIONS (8)
  - CIRCULATORY COLLAPSE [None]
  - CONDITION AGGRAVATED [None]
  - DEEP VEIN THROMBOSIS [None]
  - IRRITABLE BOWEL SYNDROME [None]
  - MENTAL DISORDER [None]
  - PULMONARY EMBOLISM [None]
  - TREATMENT NONCOMPLIANCE [None]
  - WEIGHT INCREASED [None]
